FAERS Safety Report 21457340 (Version 1)
Quarter: 2022Q4

REPORT INFORMATION
  Report Type: Spontaneous
  Country: US (occurrence: None)
  Receive Date: 20221013
  Receipt Date: 20221013
  Transmission Date: 20230113
  Serious: Yes (Life-Threatening, Hospitalization, Other)
  Sender: FDA-Public Use
  Company Number: None

PATIENT
  Age: 92 Year
  Sex: Male
  Weight: 74.25 kg

DRUGS (6)
  1. CIPRO [Suspect]
     Active Substance: CIPROFLOXACIN HYDROCHLORIDE
     Indication: Postoperative care
     Dates: start: 20220912, end: 20220912
  2. CIPRO [Suspect]
     Active Substance: CIPROFLOXACIN HYDROCHLORIDE
     Indication: Urethral operation
  3. ALLOPURINOL [Concomitant]
     Active Substance: ALLOPURINOL
  4. CLONAZEPAM [Concomitant]
     Active Substance: CLONAZEPAM
  5. LISINOPRIL [Concomitant]
     Active Substance: LISINOPRIL
  6. VITAMIN B12 [Concomitant]
     Active Substance: CYANOCOBALAMIN

REACTIONS (10)
  - Depressed level of consciousness [None]
  - Diarrhoea [None]
  - Vomiting [None]
  - Asthenia [None]
  - Gait disturbance [None]
  - Near death experience [None]
  - Presyncope [None]
  - Blood sodium decreased [None]
  - Pain in extremity [None]
  - Muscle spasms [None]

NARRATIVE: CASE EVENT DATE: 20220912
